FAERS Safety Report 4603187-0 (Version None)
Quarter: 2005Q1

REPORT INFORMATION
  Report Type: 
  Country: None (occurrence: None)
  Receive Date: 20050307
  Receipt Date: 20050228
  Transmission Date: 20050727
  Serious: Yes (Death)
  Sender: FDA-Public Use
  Company Number: MEDI-0002533

PATIENT
  Sex: Male
  Weight: 4.82 kg

DRUGS (8)
  1. SYNAGIS [Suspect]
     Indication: ANTIVIRAL PROPHYLAXIS
     Dosage: 72 MG, 1 IN 3 D, INTRAMUSCULAR
     Route: 030
     Dates: start: 20411012, end: 20041112
  2. SYTRON (SODIUM FEREDETATE) [Concomitant]
  3. ABDEC [Concomitant]
  4. CEFTAZIDIME SODIUM [Concomitant]
  5. FLUCONAZOLE [Concomitant]
  6. CAFFEINE (CAFFEINE) [Concomitant]
  7. ACYCLOVIR [Concomitant]
  8. MORPHINE [Concomitant]

REACTIONS (8)
  - CIRCULATORY COLLAPSE [None]
  - HYDROCEPHALUS [None]
  - HYPONATRAEMIA [None]
  - INTRAVENTRICULAR HAEMORRHAGE [None]
  - LUNG DISORDER [None]
  - PLATELET COUNT DECREASED [None]
  - SEPSIS [None]
  - SUDDEN INFANT DEATH SYNDROME [None]
